FAERS Safety Report 20519694 (Version 1)
Quarter: 2022Q1

REPORT INFORMATION
  Report Type: Spontaneous
  Country: CN (occurrence: CN)
  Receive Date: 20220225
  Receipt Date: 20220225
  Transmission Date: 20220424
  Serious: Yes (Hospitalization, Other)
  Sender: FDA-Public Use
  Company Number: CN-GLAXOSMITHKLINE-CN2022APC031646

PATIENT
  Sex: Male
  Weight: 55 kg

DRUGS (1)
  1. BENLYSTA [Suspect]
     Active Substance: BELIMUMAB
     Indication: Systemic lupus erythematosus
     Dosage: 480 MG, Z(EVERY 30 DAYS)
     Route: 041
     Dates: start: 20210505, end: 20211016

REACTIONS (8)
  - Pneumonia [Recovering/Resolving]
  - Systemic lupus erythematosus [Recovering/Resolving]
  - Pericardial effusion [Recovering/Resolving]
  - Pneumonitis [Recovering/Resolving]
  - Lung disorder [Recovering/Resolving]
  - Cough [Recovering/Resolving]
  - Productive cough [Recovering/Resolving]
  - C-reactive protein increased [Recovering/Resolving]

NARRATIVE: CASE EVENT DATE: 20220117
